FAERS Safety Report 19291635 (Version 2)
Quarter: 2022Q2

REPORT INFORMATION
  Report Type: Spontaneous
  Country: US (occurrence: US)
  Receive Date: 20210523
  Receipt Date: 20220526
  Transmission Date: 20220721
  Serious: Yes (Other)
  Sender: FDA-Public Use
  Company Number: US-NOVEN PHARMACEUTICALS, INC.-2020-NOV-US009419

PATIENT
  Age: 12 Year
  Sex: Female

DRUGS (3)
  1. DAYTRANA [Suspect]
     Active Substance: METHYLPHENIDATE
     Indication: Attention deficit hyperactivity disorder
     Dosage: 20MG/9 HOURS, 1 PATCH FOR 9 HOURS DAILY
     Route: 062
     Dates: start: 202009
  2. DAYTRANA [Suspect]
     Active Substance: METHYLPHENIDATE
     Dosage: 10 MG/ 9HOURS, 1 PATCH FOR 9 HOURS DAILY
     Route: 062
     Dates: end: 202009
  3. DAYTRANA [Suspect]
     Active Substance: METHYLPHENIDATE
     Dosage: UNK

REACTIONS (5)
  - Drug ineffective [Recovered/Resolved]
  - Device adhesion issue [Not Recovered/Not Resolved]
  - Device difficult to use [Not Recovered/Not Resolved]
  - Incorrect dose administered by product [Not Recovered/Not Resolved]
  - Product administration error [Not Recovered/Not Resolved]

NARRATIVE: CASE EVENT DATE: 20201101
